FAERS Safety Report 10019772 (Version 2)
Quarter: 2014Q1

REPORT INFORMATION
  Report Type: Spontaneous
  Country: US (occurrence: US)
  Receive Date: 20140318
  Receipt Date: 20140318
  Transmission Date: 20141002
  Serious: No
  Sender: FDA-Public Use
  Company Number: US-GALDERMA-US13004079

PATIENT
  Age: 58 Year
  Sex: Female
  Weight: 65.68 kg

DRUGS (4)
  1. MIRVASO (BRIMONIDINE) TOPICAL GEL, 0.33% [Suspect]
     Indication: ROSACEA
     Dosage: 0.33%
     Route: 061
     Dates: start: 201311, end: 201311
  2. DESOWEN (DESONIDE) LOTION 0.05% [Concomitant]
     Route: 061
     Dates: start: 2012
  3. DICLOXACILLIN [Concomitant]
     Dosage: 1000 MG
     Route: 048
     Dates: start: 201311
  4. SULFACETAMIDE [Concomitant]
     Route: 061
     Dates: start: 2012

REACTIONS (5)
  - Swollen tongue [Recovered/Resolved]
  - Lip swelling [Recovered/Resolved]
  - Swelling face [Recovered/Resolved]
  - Chest discomfort [Recovered/Resolved]
  - Rash macular [Recovered/Resolved]
